FAERS Safety Report 20167578 (Version 2)
Quarter: 2022Q1

REPORT INFORMATION
  Report Type: Report from Study
  Country: US (occurrence: US)
  Receive Date: 20211209
  Receipt Date: 20220104
  Transmission Date: 20220423
  Serious: Yes (Death, Other)
  Sender: FDA-Public Use
  Company Number: US-ACADIA PHARMACEUTICALS INC.-ACA-2021-PIM-004228

PATIENT
  Sex: Male

DRUGS (14)
  1. NUPLAZID [Suspect]
     Active Substance: PIMAVANSERIN TARTRATE
     Indication: Parkinson^s disease
     Dosage: 34 MILLIGRAM, QD
     Route: 048
     Dates: start: 20210917
  2. NUPLAZID [Suspect]
     Active Substance: PIMAVANSERIN TARTRATE
     Dosage: 34 MILLIGRAM, QD
     Route: 048
     Dates: start: 20190124
  3. NOURIANZ [Concomitant]
     Active Substance: ISTRADEFYLLINE
     Dosage: 20 MILLIGRAM, QD
     Route: 048
     Dates: start: 20200610
  4. ASPIRIN [Concomitant]
     Active Substance: ASPIRIN
     Dosage: 81 MILLIGRAM, QD
     Route: 048
  5. BELSOMRA [Concomitant]
     Active Substance: SUVOREXANT
     Indication: Sleep disorder
     Dosage: 5 MILLIGRAM, (1 TABLET AT BEDTIME AS NEEDED FOR SLEEP)
     Route: 048
     Dates: start: 20210802
  6. CARBIDOPA\LEVODOPA [Concomitant]
     Active Substance: CARBIDOPA\LEVODOPA
     Dosage: 25-100 MG (DISSOLVE 2 TABLETS BY MOUTH 3 TIMES A DAY)
     Route: 048
     Dates: start: 20200513
  7. DOXYCYCLINE HYCLATE [Concomitant]
     Active Substance: DOXYCYCLINE HYCLATE
     Dosage: 100 MILLIGRAM (1 CAPSULE EVERY 12 HOURSE UNTIL GONE)
     Route: 048
     Dates: start: 20211117
  8. GOCOVRI [Concomitant]
     Active Substance: AMANTADINE
     Dosage: 68.5 MG (I CAPSULE EVERYNIGHT AT BEDTIME)
     Route: 048
     Dates: start: 20191111
  9. GUAIFENESIN [Concomitant]
     Active Substance: GUAIFENESIN
     Indication: Cough
     Dosage: 100 MG/5 ML (TAKE 10ML EVERY 4 HOURS)
     Route: 048
     Dates: start: 20211117
  10. MELATONIN [Concomitant]
     Active Substance: MELATONIN
     Dosage: 5 MILLIGRAM (TAKE 2 CAPSULE DAILY)
     Route: 048
  11. MEMANTINE [Concomitant]
     Active Substance: MEMANTINE
     Dosage: 10 MILLIGRAM (1 TABLET TWICE A DAY)
     Route: 048
     Dates: start: 20210118
  12. MIRALAX [Concomitant]
     Active Substance: POLYETHYLENE GLYCOL 3350
  13. PRAMIPEXOLE DIHYDROCHLORIDE [Concomitant]
     Active Substance: PRAMIPEXOLE DIHYDROCHLORIDE
     Dosage: 0.25 MG (1 TABLET 3 TIMES A DAY)
     Route: 048
     Dates: start: 20161219
  14. RIVASTIGMINE TARTRATE [Concomitant]
     Active Substance: RIVASTIGMINE TARTRATE
     Dosage: 1.5 MG (I CAPSULE EVERY DAY)
     Route: 048
     Dates: start: 20131121

REACTIONS (3)
  - Multiple system atrophy [Recovered/Resolved]
  - Neurological decompensation [Recovered/Resolved]
  - Aspiration [Recovered/Resolved]
